FAERS Safety Report 7245146-8 (Version None)
Quarter: 2011Q1

REPORT INFORMATION
  Report Type: 
  Country: None (occurrence: None)
  Receive Date: 20110126
  Receipt Date: 20101202
  Transmission Date: 20110831
  Serious: Yes (Other)
  Sender: FDA-Public Use
  Company Number: US-NAPPMUNDI-USA-2010-0056979

PATIENT
  Sex: Female

DRUGS (1)
  1. OXYCONTIN [Suspect]
     Indication: ACCIDENT AT WORK

REACTIONS (5)
  - MOOD SWINGS [None]
  - SUICIDAL IDEATION [None]
  - NAUSEA [None]
  - DRUG DEPENDENCE [None]
  - HEADACHE [None]
